FAERS Safety Report 16378849 (Version 1)
Quarter: 2019Q2

REPORT INFORMATION
  Report Type: Spontaneous
  Country: US (occurrence: US)
  Receive Date: 20190531
  Receipt Date: 20190531
  Transmission Date: 20190711
  Serious: No
  Sender: FDA-Public Use
  Company Number: US-SA-2019SA143929

PATIENT

DRUGS (2)
  1. ZANTAC 75 [Suspect]
     Active Substance: RANITIDINE HYDROCHLORIDE
     Indication: PRODUCT USED FOR UNKNOWN INDICATION
  2. KETOTIFEN FUMARATE. [Suspect]
     Active Substance: KETOTIFEN FUMARATE

REACTIONS (3)
  - Somnolence [Unknown]
  - Palpitations [Unknown]
  - Dry mouth [Unknown]
